FAERS Safety Report 20430252 (Version 1)
Quarter: 2022Q1

REPORT INFORMATION
  Report Type: Report from Study
  Country: FR (occurrence: FR)
  Receive Date: 20220204
  Receipt Date: 20220204
  Transmission Date: 20220423
  Serious: Yes (Other)
  Sender: FDA-Public Use
  Company Number: FR-SERVIER-S20004539

PATIENT

DRUGS (6)
  1. PEGASPARGASE [Suspect]
     Active Substance: PEGASPARGASE
     Indication: Acute lymphocytic leukaemia
     Dosage: 900 IU, D12, D26
     Route: 042
     Dates: start: 20191014, end: 20191112
  2. VINCRISTINE SULFATE [Suspect]
     Active Substance: VINCRISTINE SULFATE
     Indication: Acute lymphocytic leukaemia
     Dosage: 1.1 MG, D1, D8, D29, D36, D57, D64
     Route: 042
     Dates: start: 20191007
  3. METHOTREXATE [Suspect]
     Active Substance: METHOTREXATE
     Indication: Acute lymphocytic leukaemia
     Dosage: 12 MG, D2, D30, D58
     Route: 037
     Dates: start: 20191008
  4. METHOTREXATE [Suspect]
     Active Substance: METHOTREXATE
     Dosage: 17.5 MG  ON D8, D15, D22, D36, D43, D50, D64 AND D77)
     Route: 048
     Dates: start: 20191014
  5. MERCAPTOPURINE [Suspect]
     Active Substance: MERCAPTOPURINE
     Indication: Acute lymphocytic leukaemia
     Dosage: 50 MG, ON D1 TO D21, D29 TO D49 , D57 TO D77
     Route: 048
     Dates: start: 20191007
  6. DEXAMETHASONE SODIUM PHOSPHATE [Suspect]
     Active Substance: DEXAMETHASONE SODIUM PHOSPHATE
     Indication: Acute lymphocytic leukaemia
     Dosage: 4.5 M, D1 TO D5, D29 TO D33, D57 TO D61
     Route: 048
     Dates: start: 20191007

REACTIONS (3)
  - Alanine aminotransferase increased [Not Recovered/Not Resolved]
  - Cholestasis [Recovered/Resolved]
  - Hepatic cytolysis [Recovered/Resolved]

NARRATIVE: CASE EVENT DATE: 20191112
